FAERS Safety Report 15472338 (Version 1)
Quarter: 2018Q4

REPORT INFORMATION
  Report Type: Spontaneous
  Country: KW (occurrence: KW)
  Receive Date: 20181008
  Receipt Date: 20181008
  Transmission Date: 20190205
  Serious: Yes (Other)
  Sender: FDA-Public Use
  Company Number: KW-AXELLIA-001979

PATIENT
  Sex: Male

DRUGS (3)
  1. MEROPENEM. [Concomitant]
     Active Substance: MEROPENEM
     Indication: PSEUDOMONAS INFECTION
  2. AMBISOME [Concomitant]
     Active Substance: AMPHOTERICIN B
     Indication: EVIDENCE BASED TREATMENT
  3. VANCOMYCIN [Suspect]
     Active Substance: VANCOMYCIN
     Indication: ENTEROCOCCAL INFECTION

REACTIONS (1)
  - Nephropathy toxic [Unknown]
